FAERS Safety Report 25008014 (Version 1)
Quarter: 2025Q1

REPORT INFORMATION
  Report Type: Spontaneous
  Country: FR (occurrence: FR)
  Receive Date: 20250225
  Receipt Date: 20250225
  Transmission Date: 20250408
  Serious: Yes (Life-Threatening, Hospitalization, Other)
  Sender: CHEPLAPHARM
  Company Number: None

PATIENT
  Age: 37 Year
  Sex: Female
  Weight: 65 kg

DRUGS (109)
  1. PREDNISOLONE SODIUM METASULFOBENZOATE [Suspect]
     Active Substance: PREDNISOLONE SODIUM METAZOATE
     Indication: Prophylaxis against transplant rejection
     Dosage: DAILY DOSE: 20 MILLIGRAM
     Route: 048
     Dates: start: 20240608, end: 20240706
  2. PREDNISOLONE SODIUM METASULFOBENZOATE [Suspect]
     Active Substance: PREDNISOLONE SODIUM METAZOATE
     Indication: Prophylaxis against transplant rejection
     Dosage: DAILY DOSE: 15 MILLIGRAM
     Route: 048
     Dates: start: 20240707, end: 20240813
  3. PREDNISOLONE SODIUM METASULFOBENZOATE [Suspect]
     Active Substance: PREDNISOLONE SODIUM METAZOATE
     Indication: Prophylaxis against transplant rejection
     Dosage: DAILY DOSE: 10 MILLIGRAM
     Route: 048
     Dates: start: 20240813, end: 20241008
  4. PREDNISOLONE SODIUM METASULFOBENZOATE [Suspect]
     Active Substance: PREDNISOLONE SODIUM METAZOATE
     Indication: Prophylaxis against transplant rejection
     Dosage: DAILY DOSE: 5 MILLIGRAM
     Route: 048
     Dates: start: 20241009
  5. PREDNISONE [Suspect]
     Active Substance: PREDNISONE
     Indication: Oedema peripheral
     Dates: start: 20070102
  6. PREDNISONE [Suspect]
     Active Substance: PREDNISONE
     Indication: Proteinuria
     Dates: start: 20070102
  7. PREDNISONE [Suspect]
     Active Substance: PREDNISONE
     Indication: Oedema peripheral
     Dosage: NEW REDUCTION IN PREDNISONE TO 7.5 MG/DAY ?DAILY DOSE: 7.5 MILLIGRAM
     Dates: start: 20080624
  8. PREDNISONE [Suspect]
     Active Substance: PREDNISONE
     Indication: Proteinuria
     Dosage: NEW REDUCTION IN PREDNISONE TO 7.5 MG/DAY ?DAILY DOSE: 7.5 MILLIGRAM
     Dates: start: 20080624
  9. PREDNISONE [Suspect]
     Active Substance: PREDNISONE
     Indication: Oedema peripheral
     Dosage: INCREASE IN CORTANCYL TO 10 MG PER DAY?DAILY DOSE: 7.5 MILLIGRAM
     Dates: start: 20081016
  10. PREDNISONE [Suspect]
     Active Substance: PREDNISONE
     Indication: Proteinuria
     Dosage: INCREASE IN CORTANCYL TO 10 MG PER DAY?DAILY DOSE: 7.5 MILLIGRAM
     Dates: start: 20081016
  11. PREDNISONE [Suspect]
     Active Substance: PREDNISONE
     Indication: Oedema peripheral
     Dosage: DECREASE IN PREDNISONE TO 6 MG/DAY?DAILY DOSE: 6 MILLIGRAM
     Dates: start: 20090408
  12. PREDNISONE [Suspect]
     Active Substance: PREDNISONE
     Indication: Proteinuria
     Dosage: DECREASE IN PREDNISONE TO 6 MG/DAY?DAILY DOSE: 6 MILLIGRAM
     Dates: start: 20090408
  13. PREDNISONE [Suspect]
     Active Substance: PREDNISONE
     Indication: Oedema peripheral
     Dosage: DECREASE IN PREDNISONE TO 5 MG/DAY?DAILY DOSE: 5 MILLIGRAM
     Dates: start: 20100323
  14. PREDNISONE [Suspect]
     Active Substance: PREDNISONE
     Indication: Proteinuria
     Dosage: DECREASE IN PREDNISONE TO 5 MG/DAY?DAILY DOSE: 5 MILLIGRAM
     Dates: start: 20100323
  15. PREDNISONE [Suspect]
     Active Substance: PREDNISONE
     Indication: Oedema peripheral
     Dosage: NEW INCREASE IN PREDNISONE TO 6 MG/DAY ?DAILY DOSE: 6 MILLIGRAM
     Dates: start: 20100923
  16. PREDNISONE [Suspect]
     Active Substance: PREDNISONE
     Indication: Proteinuria
     Dosage: NEW INCREASE IN PREDNISONE TO 6 MG/DAY ?DAILY DOSE: 6 MILLIGRAM
     Dates: start: 20100923
  17. PREDNISONE [Suspect]
     Active Substance: PREDNISONE
     Indication: Oedema peripheral
     Dosage: DAILY DOSE: 15 MILLIGRAM
     Dates: start: 201011
  18. PREDNISONE [Suspect]
     Active Substance: PREDNISONE
     Indication: Proteinuria
     Dosage: DAILY DOSE: 15 MILLIGRAM
     Dates: start: 201011
  19. PREDNISONE [Suspect]
     Active Substance: PREDNISONE
     Indication: Oedema peripheral
     Dosage: INCREASE IN PREDNISONE TO 15 MG/DAY?DAILY DOSE: 15 MILLIGRAM
     Dates: start: 20110204
  20. PREDNISONE [Suspect]
     Active Substance: PREDNISONE
     Indication: Proteinuria
     Dosage: INCREASE IN PREDNISONE TO 15 MG/DAY?DAILY DOSE: 15 MILLIGRAM
     Dates: start: 20110204
  21. PREDNISONE [Suspect]
     Active Substance: PREDNISONE
     Indication: Oedema peripheral
     Dosage: CONTINUED?DAILY DOSE: 5 MILLIGRAM
     Dates: start: 201111
  22. PREDNISONE [Suspect]
     Active Substance: PREDNISONE
     Indication: Proteinuria
     Dosage: CONTINUED?DAILY DOSE: 5 MILLIGRAM
     Dates: start: 201111
  23. PREDNISONE [Suspect]
     Active Substance: PREDNISONE
     Indication: Oedema peripheral
     Dosage: CORTANCYL 6 MG/DAY?DAILY DOSE: 6 MILLIGRAM
     Dates: start: 20130407
  24. PREDNISONE [Suspect]
     Active Substance: PREDNISONE
     Indication: Proteinuria
     Dosage: CORTANCYL 6 MG/DAY?DAILY DOSE: 6 MILLIGRAM
     Dates: start: 20130407
  25. PREDNISONE [Suspect]
     Active Substance: PREDNISONE
     Indication: Oedema peripheral
     Dates: start: 20160831
  26. PREDNISONE [Suspect]
     Active Substance: PREDNISONE
     Indication: Proteinuria
     Dates: start: 20160831
  27. PREDNISONE [Suspect]
     Active Substance: PREDNISONE
     Indication: Oedema peripheral
     Dosage: PREDNISONE 40 MG/DAY?DAILY DOSE: 40 MILLIGRAM
     Dates: start: 2020
  28. PREDNISONE [Suspect]
     Active Substance: PREDNISONE
     Indication: Proteinuria
     Dosage: PREDNISONE 40 MG/DAY?DAILY DOSE: 40 MILLIGRAM
     Dates: start: 2020
  29. PREDNISONE [Suspect]
     Active Substance: PREDNISONE
     Indication: Oedema peripheral
     Dosage: CORTICOSTEROID THERAPY 5 MG/DAY?DAILY DOSE: 5 MILLIGRAM
     Dates: start: 20220811
  30. PREDNISONE [Suspect]
     Active Substance: PREDNISONE
     Indication: Proteinuria
     Dosage: CORTICOSTEROID THERAPY 5 MG/DAY?DAILY DOSE: 5 MILLIGRAM
     Dates: start: 20220811
  31. PREDNISONE [Suspect]
     Active Substance: PREDNISONE
     Indication: Oedema peripheral
  32. PREDNISONE [Suspect]
     Active Substance: PREDNISONE
     Indication: Proteinuria
  33. PREDNISONE [Suspect]
     Active Substance: PREDNISONE
     Indication: Oedema peripheral
     Dosage: DAILY DOSE: 7.5 MILLIGRAM
  34. PREDNISONE [Suspect]
     Active Substance: PREDNISONE
     Indication: Proteinuria
     Dosage: DAILY DOSE: 7.5 MILLIGRAM
  35. PREDNISONE [Suspect]
     Active Substance: PREDNISONE
     Indication: Oedema peripheral
     Dosage: DAILY DOSE: 5 MILLIGRAM
  36. PREDNISONE [Suspect]
     Active Substance: PREDNISONE
     Indication: Proteinuria
     Dosage: DAILY DOSE: 5 MILLIGRAM
  37. PREDNISONE [Suspect]
     Active Substance: PREDNISONE
     Indication: Oedema peripheral
     Dosage: DAILY DOSE: 6 MILLIGRAM
  38. PREDNISONE [Suspect]
     Active Substance: PREDNISONE
     Indication: Proteinuria
     Dosage: DAILY DOSE: 6 MILLIGRAM
  39. PREDNISONE [Suspect]
     Active Substance: PREDNISONE
     Indication: Oedema peripheral
     Dosage: DAILY DOSE: 10 MILLIGRAM
  40. PREDNISONE [Suspect]
     Active Substance: PREDNISONE
     Indication: Proteinuria
     Dosage: DAILY DOSE: 10 MILLIGRAM
  41. PREDNISONE [Suspect]
     Active Substance: PREDNISONE
     Indication: Oedema peripheral
     Dosage: DAILY DOSE: 40 MILLIGRAM
  42. PREDNISONE [Suspect]
     Active Substance: PREDNISONE
     Indication: Proteinuria
     Dosage: DAILY DOSE: 40 MILLIGRAM
  43. PREDNISONE [Suspect]
     Active Substance: PREDNISONE
     Indication: Oedema peripheral
     Dosage: UNDER 10 MG OF CORTANCYL?DAILY DOSE: 10 MILLIGRAM
  44. PREDNISONE [Suspect]
     Active Substance: PREDNISONE
     Indication: Proteinuria
     Dosage: UNDER 10 MG OF CORTANCYL?DAILY DOSE: 10 MILLIGRAM
  45. VALGANCICLOVIR [Suspect]
     Active Substance: VALGANCICLOVIR
     Dosage: VALGANCICLOVIR 450 MG: 2 TABLETS IN THE MORNING, UNTIL 12/07/24 INCLUSIVE?DAILY DOSE: 2 DOSAGE FORM
     Dates: end: 20240712
  46. MYCOPHENOLIC ACID [Suspect]
     Active Substance: MYCOPHENOLIC ACID
     Indication: Prophylaxis against transplant rejection
     Route: 048
     Dates: start: 20240606, end: 20240606
  47. MYCOPHENOLIC ACID [Suspect]
     Active Substance: MYCOPHENOLIC ACID
     Indication: Prophylaxis against transplant rejection
     Route: 048
     Dates: start: 20240607
  48. ENVARSUS XR [Suspect]
     Active Substance: TACROLIMUS
     Indication: Overdose
     Dosage: IN THE MORING, DOSE REDUCED?DAILY DOSE: 4.5 MILLIGRAM
     Route: 048
     Dates: start: 20240606
  49. ENVARSUS XR [Suspect]
     Active Substance: TACROLIMUS
     Indication: Prophylaxis against transplant rejection
     Dosage: IN THE MORING, DOSE REDUCED?DAILY DOSE: 4.5 MILLIGRAM
     Route: 048
     Dates: start: 20240606
  50. ENVARSUS XR [Suspect]
     Active Substance: TACROLIMUS
     Indication: Overdose
     Dosage: FINALLY BALANCED UNDER ENVARSUS 4 MG?DAILY DOSE: 4 MILLIGRAM
     Route: 048
     Dates: start: 20240610
  51. ENVARSUS XR [Suspect]
     Active Substance: TACROLIMUS
     Indication: Prophylaxis against transplant rejection
     Dosage: FINALLY BALANCED UNDER ENVARSUS 4 MG?DAILY DOSE: 4 MILLIGRAM
     Route: 048
     Dates: start: 20240610
  52. THYMOGLOBULINE [Suspect]
     Active Substance: LAPINE T-LYMPHOCYTE IMMUNE GLOBULIN
     Indication: Prophylaxis against transplant rejection
     Route: 042
     Dates: start: 20240607, end: 20240608
  53. THYMOGLOBULINE [Suspect]
     Active Substance: LAPINE T-LYMPHOCYTE IMMUNE GLOBULIN
     Indication: Prophylaxis against transplant rejection
     Route: 042
     Dates: start: 20240613, end: 20240617
  54. BACTRIM [Suspect]
     Active Substance: SULFAMETHOXAZOLE\TRIMETHOPRIM
     Dosage: BACTRIM 400 + 80 MG: 1 TABLET IN THE MORNING, UNTIL 12/07/24 INCLUSIVE?DAILY DOSE: 1 DOSAGE FORM
     Dates: end: 20240712
  55. LEUCOVORIN CALCIUM [Suspect]
     Active Substance: LEUCOVORIN CALCIUM
     Dosage: LEDERFOLINE 5 MG: 1 TABLET IN THE MORNING, UNTIL 12/07/24 INCLUSIVE?DAILY DOSE: 1 DOSAGE FORM
     Dates: end: 20240712
  56. AMLODIPINE [Concomitant]
     Active Substance: AMLODIPINE BESYLATE
     Indication: Hypertension
     Dosage: AMLODIPINE 5 MG/DAY?DAILY DOSE: 5 MILLIGRAM
     Route: 048
     Dates: start: 20220202
  57. AMLODIPINE [Concomitant]
     Active Substance: AMLODIPINE BESYLATE
     Indication: Hypertension
     Dosage: DOSE NOT CHANGED?DAILY DOSE: 10 MILLIGRAM
     Route: 048
  58. ATENOLOL [Concomitant]
     Active Substance: ATENOLOL
     Indication: Hypertension
     Dosage: DOSE NOT CHANGED?DAILY DOSE: 50 MILLIGRAM
     Route: 048
     Dates: start: 20220202
  59. PLAQUENIL [Concomitant]
     Active Substance: HYDROXYCHLOROQUINE SULFATE
     Indication: Systemic lupus erythematosus
     Dates: start: 20070102
  60. PLAQUENIL [Concomitant]
     Active Substance: HYDROXYCHLOROQUINE SULFATE
     Indication: Proteinuria
     Dates: start: 20070102
  61. PLAQUENIL [Concomitant]
     Active Substance: HYDROXYCHLOROQUINE SULFATE
     Indication: Oedema peripheral
     Dates: start: 20070102
  62. PLAQUENIL [Concomitant]
     Active Substance: HYDROXYCHLOROQUINE SULFATE
     Indication: Systemic lupus erythematosus
     Dates: start: 20110204
  63. PLAQUENIL [Concomitant]
     Active Substance: HYDROXYCHLOROQUINE SULFATE
     Indication: Proteinuria
     Dates: start: 20110204
  64. PLAQUENIL [Concomitant]
     Active Substance: HYDROXYCHLOROQUINE SULFATE
     Indication: Oedema peripheral
     Dates: start: 20110204
  65. PLAQUENIL [Concomitant]
     Active Substance: HYDROXYCHLOROQUINE SULFATE
     Indication: Systemic lupus erythematosus
     Dates: start: 20110204
  66. PLAQUENIL [Concomitant]
     Active Substance: HYDROXYCHLOROQUINE SULFATE
     Indication: Proteinuria
     Dates: start: 20110204
  67. PLAQUENIL [Concomitant]
     Active Substance: HYDROXYCHLOROQUINE SULFATE
     Indication: Oedema peripheral
     Dates: start: 20110204
  68. PLAQUENIL [Concomitant]
     Active Substance: HYDROXYCHLOROQUINE SULFATE
     Indication: Systemic lupus erythematosus
     Dosage: PLAQUENIL 400 MG 2 TABS/DAY?DAILY DOSE: 800 MILLIGRAM
     Dates: start: 20130407
  69. PLAQUENIL [Concomitant]
     Active Substance: HYDROXYCHLOROQUINE SULFATE
     Indication: Proteinuria
     Dosage: PLAQUENIL 400 MG 2 TABS/DAY?DAILY DOSE: 800 MILLIGRAM
     Dates: start: 20130407
  70. PLAQUENIL [Concomitant]
     Active Substance: HYDROXYCHLOROQUINE SULFATE
     Indication: Oedema peripheral
     Dosage: PLAQUENIL 400 MG 2 TABS/DAY?DAILY DOSE: 800 MILLIGRAM
     Dates: start: 20130407
  71. PLAQUENIL [Concomitant]
     Active Substance: HYDROXYCHLOROQUINE SULFATE
     Indication: Systemic lupus erythematosus
     Dosage: DAILY DOSE: 800 MILLIGRAM
     Route: 048
     Dates: start: 20130408, end: 20130408
  72. PLAQUENIL [Concomitant]
     Active Substance: HYDROXYCHLOROQUINE SULFATE
     Indication: Proteinuria
     Dosage: DAILY DOSE: 800 MILLIGRAM
     Route: 048
     Dates: start: 20130408, end: 20130408
  73. PLAQUENIL [Concomitant]
     Active Substance: HYDROXYCHLOROQUINE SULFATE
     Indication: Oedema peripheral
     Dosage: DAILY DOSE: 800 MILLIGRAM
     Route: 048
     Dates: start: 20130408, end: 20130408
  74. PLAQUENIL [Concomitant]
     Active Substance: HYDROXYCHLOROQUINE SULFATE
     Indication: Systemic lupus erythematosus
     Dosage: DAILY DOSE: 400 MILLIGRAM
     Route: 048
     Dates: start: 20130409, end: 20241008
  75. PLAQUENIL [Concomitant]
     Active Substance: HYDROXYCHLOROQUINE SULFATE
     Indication: Proteinuria
     Dosage: DAILY DOSE: 400 MILLIGRAM
     Route: 048
     Dates: start: 20130409, end: 20241008
  76. PLAQUENIL [Concomitant]
     Active Substance: HYDROXYCHLOROQUINE SULFATE
     Indication: Oedema peripheral
     Dosage: DAILY DOSE: 400 MILLIGRAM
     Route: 048
     Dates: start: 20130409, end: 20241008
  77. PLAQUENIL [Concomitant]
     Active Substance: HYDROXYCHLOROQUINE SULFATE
     Indication: Systemic lupus erythematosus
     Dosage: PLAQUENIL 400 MG/DAY?DAILY DOSE: 400 MILLIGRAM
     Dates: start: 20220202
  78. PLAQUENIL [Concomitant]
     Active Substance: HYDROXYCHLOROQUINE SULFATE
     Indication: Proteinuria
     Dosage: PLAQUENIL 400 MG/DAY?DAILY DOSE: 400 MILLIGRAM
     Dates: start: 20220202
  79. PLAQUENIL [Concomitant]
     Active Substance: HYDROXYCHLOROQUINE SULFATE
     Indication: Oedema peripheral
     Dosage: PLAQUENIL 400 MG/DAY?DAILY DOSE: 400 MILLIGRAM
     Dates: start: 20220202
  80. PLAQUENIL [Concomitant]
     Active Substance: HYDROXYCHLOROQUINE SULFATE
     Indication: Systemic lupus erythematosus
     Dosage: DAILY DOSE: 200 MILLIGRAM
     Route: 048
     Dates: start: 20241008, end: 20241008
  81. PLAQUENIL [Concomitant]
     Active Substance: HYDROXYCHLOROQUINE SULFATE
     Indication: Proteinuria
     Dosage: DAILY DOSE: 200 MILLIGRAM
     Route: 048
     Dates: start: 20241008, end: 20241008
  82. PLAQUENIL [Concomitant]
     Active Substance: HYDROXYCHLOROQUINE SULFATE
     Indication: Oedema peripheral
     Dosage: DAILY DOSE: 200 MILLIGRAM
     Route: 048
     Dates: start: 20241008, end: 20241008
  83. PLAQUENIL [Concomitant]
     Active Substance: HYDROXYCHLOROQUINE SULFATE
     Indication: Systemic lupus erythematosus
     Dosage: 2 TABLETS IN THE MORINNG/DOSE INCREASED?DAILY DOSE: 400 MILLIGRAM
     Route: 048
     Dates: start: 20241009
  84. PLAQUENIL [Concomitant]
     Active Substance: HYDROXYCHLOROQUINE SULFATE
     Indication: Proteinuria
     Dosage: 2 TABLETS IN THE MORINNG/DOSE INCREASED?DAILY DOSE: 400 MILLIGRAM
     Route: 048
     Dates: start: 20241009
  85. PLAQUENIL [Concomitant]
     Active Substance: HYDROXYCHLOROQUINE SULFATE
     Indication: Oedema peripheral
     Dosage: 2 TABLETS IN THE MORINNG/DOSE INCREASED?DAILY DOSE: 400 MILLIGRAM
     Route: 048
     Dates: start: 20241009
  86. PRAVASTATIN SODIUM [Concomitant]
     Active Substance: PRAVASTATIN SODIUM
     Indication: Hypercholesterolaemia
     Dosage: DOSE NOT CHANGED?DAILY DOSE: 20 MILLIGRAM
     Route: 048
     Dates: start: 2023
  87. RAMIPRIL [Concomitant]
     Active Substance: RAMIPRIL
     Indication: Hypertension
     Dosage: DOSE NOT CHANGED?DAILY DOSE: 1.25 MILLIGRAM
     Route: 048
     Dates: start: 2023
  88. KARDEGIC [Concomitant]
     Active Substance: ASPIRIN DL-LYSINE
     Dosage: 1 SACHET?DAILY DOSE: 1 DOSAGE FORM
     Dates: start: 20240609
  89. TICAGRELOR [Concomitant]
     Active Substance: TICAGRELOR
  90. LANSOPRAZOLE [Concomitant]
     Active Substance: LANSOPRAZOLE
     Dosage: LANSOPRAZOLE 30 MG: 1 TABLET IN THE EVENING?DAILY DOSE: 1 DOSAGE FORM
  91. ATORVASTATIN [Concomitant]
     Active Substance: ATORVASTATIN
     Dosage: ATORVASTATIN 80 MG: 1 TABLET IN THE EVENING?DAILY DOSE: 1 DOSAGE FORM
     Dates: start: 20240609
  92. BISOPROLOL [Concomitant]
     Active Substance: BISOPROLOL
     Dosage: 1 TABLET IN THE EVENING?DAILY DOSE: 1 DOSAGE FORM
     Dates: start: 20240609
  93. ARANESP [Concomitant]
     Active Substance: DARBEPOETIN ALFA
     Dosage: ARANESP 30 UG: 1 SUBCUTANEOUS INJECTION PER WEEK
     Route: 058
  94. SODIUM BICARBONATE [Concomitant]
     Active Substance: SODIUM BICARBONATE
  95. CELLCEPT [Concomitant]
     Active Substance: MYCOPHENOLATE MOFETIL
     Dates: start: 20070404
  96. CELLCEPT [Concomitant]
     Active Substance: MYCOPHENOLATE MOFETIL
     Dates: start: 2008
  97. CELLCEPT [Concomitant]
     Active Substance: MYCOPHENOLATE MOFETIL
     Dates: end: 20240607
  98. CELLCEPT [Concomitant]
     Active Substance: MYCOPHENOLATE MOFETIL
     Dates: end: 20240707
  99. SIMVASTATIN [Concomitant]
     Active Substance: SIMVASTATIN
     Indication: Dyslipidaemia
     Dates: start: 200704, end: 20100323
  100. Estrogen-progestin [Concomitant]
     Dates: start: 2007
  101. NEORAL [Concomitant]
     Active Substance: CYCLOSPORINE
     Indication: Oedema peripheral
     Dosage: CYCLOSPORINE 100 MG X 2 PER DAY?DAILY DOSE: 200 MILLIGRAM
     Dates: start: 2008
  102. NEORAL [Concomitant]
     Active Substance: CYCLOSPORINE
     Indication: Oedema peripheral
     Dates: start: 20130407
  103. NEORAL [Concomitant]
     Active Substance: CYCLOSPORINE
     Indication: Oedema peripheral
  104. NEORAL [Concomitant]
     Active Substance: CYCLOSPORINE
     Indication: Oedema peripheral
  105. ALLOPURINOL [Concomitant]
     Active Substance: ALLOPURINOL
     Dates: start: 20161207
  106. ALDOMET [Concomitant]
     Active Substance: METHYLDOPA
     Indication: Hypertension
  107. RITUXIMAB [Concomitant]
     Active Substance: RITUXIMAB
     Dates: start: 20220811
  108. RITUXIMAB [Concomitant]
     Active Substance: RITUXIMAB
     Dates: start: 20221123
  109. COUMADIN [Concomitant]
     Active Substance: WARFARIN SODIUM
     Dates: start: 2022

REACTIONS (4)
  - Coronary artery disease [Not Recovered/Not Resolved]
  - Angina pectoris [Recovered/Resolved]
  - Myocardial infarction [Unknown]
  - Drug ineffective [Unknown]

NARRATIVE: CASE EVENT DATE: 20240609
